FAERS Safety Report 16498631 (Version 3)
Quarter: 2019Q3

REPORT INFORMATION
  Report Type: Report from Study
  Country: US (occurrence: US)
  Receive Date: 20190629
  Receipt Date: 20190823
  Transmission Date: 20191004
  Serious: Yes (Hospitalization, Other)
  Sender: FDA-Public Use
  Company Number: US-UCBSA-2019024269

PATIENT
  Age: 66 Year
  Sex: Female

DRUGS (1)
  1. CERTOLIZUMAB PEGOL [Suspect]
     Active Substance: CERTOLIZUMAB PEGOL
     Indication: PSORIATIC ARTHROPATHY
     Dosage: 400 MILLIGRAM, EV 4 WEEKS
     Dates: start: 20190418, end: 2019

REACTIONS (8)
  - Contusion [Not Recovered/Not Resolved]
  - Skin disorder [Not Recovered/Not Resolved]
  - Eye pain [Recovering/Resolving]
  - Headache [Not Recovered/Not Resolved]
  - Eye inflammation [Recovering/Resolving]
  - Cataract [Not Recovered/Not Resolved]
  - Eye pruritus [Recovering/Resolving]
  - Muscle spasms [Not Recovered/Not Resolved]

NARRATIVE: CASE EVENT DATE: 2019
